FAERS Safety Report 7978999-6 (Version None)
Quarter: 2011Q4

REPORT INFORMATION
  Report Type: 
  Country: None (occurrence: None)
  Receive Date: 20111201
  Receipt Date: 20111117
  Transmission Date: 20120403
  Serious: Yes (Other)
  Sender: FDA-Public Use
  Company Number: 2011SP054487

PATIENT
  Age: 17 Year
  Sex: Female

DRUGS (2)
  1. SAPHRIS [Suspect]
     Indication: PSYCHOTIC DISORDER
     Dosage: 5 MG;PO
     Route: 048
     Dates: start: 20110901
  2. SAPHRIS [Suspect]
     Indication: DEPRESSION
     Dosage: 5 MG;PO
     Route: 048
     Dates: start: 20110901

REACTIONS (3)
  - SWOLLEN TONGUE [None]
  - DYSPNOEA [None]
  - OFF LABEL USE [None]
